FAERS Safety Report 9792071 (Version 2)
Quarter: 2014Q1

REPORT INFORMATION
  Report Type: Spontaneous
  Country: QA (occurrence: QA)
  Receive Date: 20140102
  Receipt Date: 20140127
  Transmission Date: 20141002
  Serious: Yes (Death)
  Sender: FDA-Public Use
  Company Number: QA-PFIZER INC-2013371627

PATIENT
  Age: 59 Year
  Sex: Female

DRUGS (5)
  1. VORICONAZOLE [Suspect]
     Indication: PHAEHYPHOMYCOSIS
     Dosage: 400 MG, 2X/DAY (LOADING DOSE)
     Route: 042
     Dates: start: 20080315, end: 20080315
  2. VORICONAZOLE [Suspect]
     Dosage: 200 MG, 2X/DAY
     Route: 042
     Dates: start: 20080316
  3. AMPHOTERICIN B [Suspect]
     Indication: PHAEHYPHOMYCOSIS
     Dosage: 5 MG/KG, DAILY
     Dates: start: 20080315
  4. POSACONAZOLE [Suspect]
     Indication: PHAEHYPHOMYCOSIS
     Dosage: 400 MG, 2X/DAY
     Route: 048
  5. MANNITOL [Concomitant]
     Indication: BRAIN OEDEMA
     Dosage: 100 ML, 3X/DAY
     Route: 042

REACTIONS (1)
  - Drug ineffective [Fatal]
